FAERS Safety Report 21649419 (Version 3)
Quarter: 2023Q2

REPORT INFORMATION
  Report Type: Spontaneous
  Country: US (occurrence: US)
  Receive Date: 20221128
  Receipt Date: 20230518
  Transmission Date: 20230722
  Serious: Yes (Death)
  Sender: FDA-Public Use
  Company Number: US-Calliditas-2022CAL00557

PATIENT
  Age: 74 Year
  Sex: Male

DRUGS (6)
  1. TARPEYO [Suspect]
     Active Substance: BUDESONIDE
     Indication: IgA nephropathy
     Dosage: 16 MG (4 MG CAPSULES) DAILY
     Route: 048
     Dates: start: 20220211, end: 20230425
  2. SPIRONOLACTONE [Concomitant]
     Active Substance: SPIRONOLACTONE
  3. TORSEMIDE [Concomitant]
     Active Substance: TORSEMIDE
  4. ALLOPURINOL [Concomitant]
     Active Substance: ALLOPURINOL
  5. ATORVASTATIN [Concomitant]
     Active Substance: ATORVASTATIN
  6. ELIQUIS [Concomitant]
     Active Substance: APIXABAN

REACTIONS (2)
  - Respiratory failure [Fatal]
  - Cerebrovascular accident [Fatal]
